FAERS Safety Report 15146279 (Version 1)
Quarter: 2018Q3

REPORT INFORMATION
  Report Type: Spontaneous
  Country: GB (occurrence: GB)
  Receive Date: 20180715
  Receipt Date: 20180715
  Transmission Date: 20181010
  Serious: Yes (Other)
  Sender: FDA-Public Use
  Company Number: GB-TEVA-2018-GB-925256

PATIENT
  Age: 50 Year
  Sex: Female
  Weight: 96 kg

DRUGS (25)
  1. DOCUSATE SODIUM. [Concomitant]
     Active Substance: DOCUSATE SODIUM
     Dosage: 4 DOSAGE FORMS DAILY;
     Dates: start: 20071126
  2. SALBUTAMOL [Concomitant]
     Active Substance: ALBUTEROL
     Route: 055
     Dates: start: 20060623
  3. ERYTHROMYCIN. [Concomitant]
     Active Substance: ERYTHROMYCIN
     Dosage: 4 DOSAGE FORMS DAILY;
     Dates: start: 20170906, end: 20170913
  4. BISACODYL. [Concomitant]
     Active Substance: BISACODYL
     Dosage: 2 DOSAGE FORMS DAILY; AT NIGHT.
     Dates: start: 20090223
  5. BIOXTRA [Concomitant]
     Indication: DRY MOUTH
     Dosage: USE AS DIRECTED.
     Dates: start: 20171013, end: 20171014
  6. FEXOFENADINE [Concomitant]
     Active Substance: FEXOFENADINE\FEXOFENADINE HYDROCHLORIDE
     Dosage: 1 OR 2 TO BE TAKEN TWICE DAILY
     Dates: start: 20060623
  7. MIRTAZAPINE. [Concomitant]
     Active Substance: MIRTAZAPINE
     Dosage: 2 DOSAGE FORMS DAILY; AT NIGHT AS DIRECTED BY SPECIALIST.
     Dates: start: 20170216
  8. AZELAIC ACID. [Concomitant]
     Active Substance: AZELAIC ACID
     Dosage: 2 DOSAGE FORMS DAILY; APPLY TO RED SPOTTY AREAS OF CHEEKS.
     Dates: start: 20170831, end: 20170930
  9. GAVISCON ADVANCE [Concomitant]
     Active Substance: POTASSIUM BICARBONATE\SODIUM ALGINATE
     Dosage: 5ML OR 10ML
     Dates: start: 20151023
  10. CLONAZEPAM. [Concomitant]
     Active Substance: CLONAZEPAM
     Dosage: 2 DOSAGE FORMS DAILY; AT NIGHT
     Dates: start: 20060623
  11. PROMETHAZINE HYDROCHLORIDE. [Concomitant]
     Active Substance: PROMETHAZINE HYDROCHLORIDE
     Indication: INSOMNIA
     Dates: start: 20170818
  12. CLENIL MODULITE [Concomitant]
     Active Substance: BECLOMETHASONE DIPROPIONATE
     Dosage: 4 DOSAGE FORMS DAILY;
     Route: 055
     Dates: start: 20171009
  13. METRONIDAZOLE. [Concomitant]
     Active Substance: METRONIDAZOLE
     Dosage: 2 DOSAGE FORMS DAILY; APPLY
     Dates: start: 20171005
  14. DOXYCYCLINE. [Suspect]
     Active Substance: DOXYCYCLINE
     Route: 065
     Dates: start: 20171015
  15. TEARS NATURALE FREE [Concomitant]
     Active Substance: DEXTRAN 70\HYPROMELLOSE 2910 (4000 MPA.S)
     Indication: DRY EYE
     Dosage: 3?4 TIMES DAILY.
     Dates: start: 20141125
  16. OMEPRAZOLE. [Concomitant]
     Active Substance: OMEPRAZOLE
     Dosage: 1 DOSAGE FORMS DAILY;
     Dates: start: 20121026
  17. OTOMIZE [Concomitant]
     Active Substance: DEXAMETHASONE\NEOMYCIN SULFATE
     Dosage: 3 DOSAGE FORMS DAILY;
     Dates: start: 20170920, end: 20170921
  18. ACETIC ACID. [Concomitant]
     Active Substance: ACETIC ACID
     Dosage: THREE TIMES A DAY AS NEEDED
     Dates: start: 20171005, end: 20171012
  19. CELECOXIB. [Concomitant]
     Active Substance: CELECOXIB
     Dosage: 1 DOSAGE FORMS DAILY;
     Dates: start: 20160128
  20. AMITRIPTYLINE HYDROCHLORIDE. [Concomitant]
     Active Substance: AMITRIPTYLINE HYDROCHLORIDE
     Dosage: 4 DOSAGE FORMS DAILY; AT NIGHT.
     Dates: start: 20170208
  21. DULOXETINE. [Concomitant]
     Active Substance: DULOXETINE
     Dosage: 2 DOSAGE FORMS DAILY; AT NIGHT
     Dates: start: 20071203
  22. LONGTEC [Concomitant]
     Active Substance: OXYCODONE HYDROCHLORIDE
     Dosage: TAKE ONE IN PLACE OF FIRST ONE.
     Dates: start: 20170925
  23. SHORTEC [Concomitant]
     Dosage: TAKE UP TO 4 (80MG) 3 TIMES A DAY.
     Dates: start: 20150824
  24. FULTIUM?D3 [Concomitant]
     Active Substance: CHOLECALCIFEROL
     Dosage: 1 DOSAGE FORMS DAILY;
     Dates: start: 20130417
  25. DUROGESIC DTRANS [Concomitant]
     Active Substance: FENTANYL
     Dates: start: 20081016, end: 20170925

REACTIONS (2)
  - Lip swelling [Recovered/Resolved]
  - Hypersensitivity [Unknown]

NARRATIVE: CASE EVENT DATE: 20171015
